FAERS Safety Report 16398760 (Version 2)
Quarter: 2019Q2

REPORT INFORMATION
  Report Type: Spontaneous
  Country: US (occurrence: US)
  Receive Date: 20190606
  Receipt Date: 20190618
  Transmission Date: 20190711
  Serious: No
  Sender: FDA-Public Use
  Company Number: US-PFIZER INC-2019235027

PATIENT
  Age: 51 Year
  Sex: Female
  Weight: 88.44 kg

DRUGS (3)
  1. NORCO [Concomitant]
     Active Substance: ACETAMINOPHEN\HYDROCODONE BITARTRATE
     Indication: PAIN
     Dosage: UNK, AS NEEDED (10/325MG, TABLET, BY MOUTH, AS NEEDED)
     Route: 048
  2. LYRICA [Suspect]
     Active Substance: PREGABALIN
     Indication: NEUROPATHY PERIPHERAL
     Dosage: 100 MG, 3X/DAY
     Route: 048
     Dates: start: 2017
  3. MORPHINE [Concomitant]
     Active Substance: MORPHINE
     Indication: PAIN
     Dosage: 15 MG, 2X/DAY(15MG, TABLET, BY MOUTH, EVERY 12 HOURS)
     Route: 048

REACTIONS (4)
  - Pain in extremity [Recovering/Resolving]
  - Fall [Unknown]
  - Ligament sprain [Unknown]
  - Condition aggravated [Recovering/Resolving]
